FAERS Safety Report 5867471-5 (Version None)
Quarter: 2008Q3

REPORT INFORMATION
  Report Type: 
  Country: None (occurrence: None)
  Receive Date: 20080902
  Receipt Date: 20080819
  Transmission Date: 20090109
  Serious: Yes (Death)
  Sender: FDA-Public Use
  Company Number: US-TYCO HEALTHCARE/MALLINCKRODT-T200801410

PATIENT

DRUGS (21)
  1. METHADOSE [Suspect]
     Indication: PAIN
     Dates: start: 20060701
  2. ULTRAM [Suspect]
     Indication: PAIN
     Dosage: 2 EVERY FOUR TO SIX HOURS
     Dates: start: 20050601
  3. METHADONE HCL [Suspect]
     Indication: PAIN
     Dates: start: 20050601
  4. METHADONE HCL [Suspect]
     Dosage: 5 MG, UNK
     Dates: start: 20060601
  5. METHADONE HCL [Suspect]
     Dosage: 10 MG, UNK
     Dates: start: 20060701
  6. SOMA [Concomitant]
     Indication: DRUG USE FOR UNKNOWN INDICATION
     Dosage: 350 MG, BID
  7. CLONAZEPAM [Concomitant]
     Indication: PAIN
     Dosage: 1-3 TABLETS,  QD
     Dates: start: 20030101
  8. ALBUTEROL [Concomitant]
     Indication: DRUG USE FOR UNKNOWN INDICATION
     Dosage: 90 UG, UNK
  9. MIRALAZ [Concomitant]
     Indication: DRUG USE FOR UNKNOWN INDICATION
     Dosage: 1 QD
  10. EFFEXOR [Concomitant]
     Indication: PAIN
     Dosage: 300 MG, QD
     Dates: start: 20030101
  11. DETROL LA [Concomitant]
     Indication: DRUG USE FOR UNKNOWN INDICATION
     Dosage: 10/500, QD
  12. ASPIRIN [Concomitant]
     Indication: DRUG USE FOR UNKNOWN INDICATION
  13. BENICAR [Concomitant]
     Indication: DRUG USE FOR UNKNOWN INDICATION
     Dosage: 2 MG, QD
  14. AVICOR [Concomitant]
     Indication: DRUG USE FOR UNKNOWN INDICATION
     Dosage: 500/20 MG, QD
  15. HYDROCODONE BITARTRATE [Concomitant]
     Indication: PAIN
     Dosage: 7.5/500 , ONE TO THREE QD
     Dates: start: 20030101
  16. PROTONIX                           /01263201/ [Concomitant]
     Indication: PAIN
     Dosage: 40 MG, QD
     Dates: start: 20030101
  17. SYNTHROID [Concomitant]
     Indication: DRUG USE FOR UNKNOWN INDICATION
     Dosage: 25 UG, QD
  18. CELEBREX [Concomitant]
     Indication: PAIN
     Dosage: 200 MG, 2-3 TIMES DAILY
     Dates: start: 20030101, end: 20060701
  19. AMBIEN [Concomitant]
     Indication: DRUG USE FOR UNKNOWN INDICATION
     Dosage: 20 MG, QD
     Dates: end: 20060701
  20. MOBIC [Concomitant]
     Indication: DRUG USE FOR UNKNOWN INDICATION
     Dates: start: 20060701
  21. RESTORIL [Concomitant]
     Indication: DRUG USE FOR UNKNOWN INDICATION
     Dates: start: 20060701

REACTIONS (6)
  - CARDIOMEGALY [None]
  - CARDIOVASCULAR DISORDER [None]
  - DRUG TOXICITY [None]
  - HEPATOSPLENOMEGALY [None]
  - HYPERTENSION [None]
  - PULMONARY CONGESTION [None]
